FAERS Safety Report 12757544 (Version 1)
Quarter: 2016Q3

REPORT INFORMATION
  Report Type: Spontaneous
  Country: US (occurrence: US)
  Receive Date: 20160919
  Receipt Date: 20160919
  Transmission Date: 20161109
  Serious: No
  Sender: FDA-Public Use
  Company Number: US-TEVA-625517USA

PATIENT
  Sex: Female

DRUGS (1)
  1. MONTELUKAST [Suspect]
     Active Substance: MONTELUKAST SODIUM
     Route: 065

REACTIONS (4)
  - Asthenia [Unknown]
  - Night sweats [Unknown]
  - Nausea [Unknown]
  - Confusional state [Unknown]
